FAERS Safety Report 5748789-3 (Version None)
Quarter: 2008Q2

REPORT INFORMATION
  Report Type: 
  Country: None (occurrence: None)
  Receive Date: 20080521
  Receipt Date: 20080512
  Transmission Date: 20081010
  Serious: Yes (Hospitalization)
  Sender: FDA-Public Use
  Company Number: 2006-01217

PATIENT
  Age: 52 Year
  Sex: Male
  Weight: 100 kg

DRUGS (2)
  1. VELCADE [Suspect]
     Indication: MULTIPLE MYELOMA
     Dosage: 1.30 MG/M2,  INTRAVENOUS
     Route: 042
     Dates: start: 20060414, end: 20060505
  2. DEXAMETHASONE TAB [Suspect]
     Indication: MULTIPLE MYELOMA
     Dosage: 40.00 MG, ORAL
     Route: 048
     Dates: start: 20060414, end: 20060505

REACTIONS (4)
  - AGGRESSION [None]
  - DISINHIBITION [None]
  - MANIA [None]
  - TACHYCARDIA [None]
